FAERS Safety Report 6203297-0 (Version None)
Quarter: 2009Q2

REPORT INFORMATION
  Report Type: 
  Country: None (occurrence: None)
  Receive Date: 20090522
  Receipt Date: 20090522
  Transmission Date: 20091009
  Serious: Yes (Hospitalization)
  Sender: FDA-Public Use
  Company Number: None

PATIENT
  Sex: Female
  Weight: 75 kg

DRUGS (7)
  1. CYCLOPHOSPHAMIDE [Suspect]
     Dosage: 1100 MG
  2. DOXORUBICIN HYDROCHLORIDE [Suspect]
     Dosage: 110 MG
  3. AUGMENTIN '125' [Concomitant]
  4. COLACE [Concomitant]
  5. NEXIUM [Concomitant]
  6. OXYCODONE [Concomitant]
  7. SYNTHROID [Concomitant]

REACTIONS (8)
  - CELLULITIS [None]
  - DIARRHOEA [None]
  - FEBRILE NEUTROPENIA [None]
  - NAUSEA [None]
  - POST PROCEDURAL COMPLICATION [None]
  - POSTOPERATIVE WOUND INFECTION [None]
  - SWELLING [None]
  - TENDERNESS [None]
